FAERS Safety Report 4586176-4 (Version None)
Quarter: 2005Q1

REPORT INFORMATION
  Report Type: 
  Country: None (occurrence: None)
  Receive Date: 20050125
  Receipt Date: 20041019
  Transmission Date: 20050727
  Serious: No
  Sender: FDA-Public Use
  Company Number: USA041081623

PATIENT
  Age: 35 Year
  Sex: Female

DRUGS (4)
  1. FORTEO [Suspect]
     Indication: OSTEOPOROSIS
     Dosage: 20 UG/L DAY
     Dates: start: 20040520
  2. EVISTA [Suspect]
  3. ACTONEOL (RISEDRONATE SODIUM) [Concomitant]
  4. MIACALCIN [Concomitant]

REACTIONS (6)
  - BONE DENSITY DECREASED [None]
  - INJECTION SITE ERYTHEMA [None]
  - KIDNEY INFECTION [None]
  - MULTIPLE FRACTURES [None]
  - RIB FRACTURE [None]
  - SPINAL FRACTURE [None]
